FAERS Safety Report 4649347-4 (Version None)
Quarter: 2005Q2

REPORT INFORMATION
  Report Type: 
  Country: None (occurrence: None)
  Receive Date: 20050429
  Receipt Date: 20050421
  Transmission Date: 20051028
  Serious: Yes (Other)
  Sender: FDA-Public Use
  Company Number: CH-ABBOTT-05P-151-0298197-00

PATIENT
  Age: 21 Year
  Sex: Male

DRUGS (4)
  1. DEPAKENE [Suspect]
     Indication: AFFECTIVE DISORDER
     Route: 065
     Dates: start: 20041201, end: 20050329
  2. CLOZAPINE [Concomitant]
     Indication: PSYCHOTIC DISORDER
     Route: 065
     Dates: start: 20041201, end: 20050207
  3. CLOZAPINE [Concomitant]
     Dosage: DOSE REDUCTION
     Route: 065
     Dates: start: 20050207, end: 20050303
  4. QUETIAPINE FUMARATE [Concomitant]
     Indication: PSYCHOTIC DISORDER
     Route: 065
     Dates: start: 20050216

REACTIONS (5)
  - DRUG LEVEL DECREASED [None]
  - GYNAECOMASTIA [None]
  - LIPASE INCREASED [None]
  - VOMITING [None]
  - WEIGHT DECREASED [None]
